APPROVED DRUG PRODUCT: CYCLOMYDRIL
Active Ingredient: CYCLOPENTOLATE HYDROCHLORIDE; PHENYLEPHRINE HYDROCHLORIDE
Strength: 0.2%;1%
Dosage Form/Route: SOLUTION/DROPS;OPHTHALMIC
Application: A084300 | Product #001
Applicant: ALCON LABORATORIES INC
Approved: Approved Prior to Jan 1, 1982 | RLD: Yes | RS: Yes | Type: RX